FAERS Safety Report 9195731 (Version 1)
Quarter: 2013Q1

REPORT INFORMATION
  Report Type: Spontaneous
  Country: US (occurrence: None)
  Receive Date: 20120703
  Receipt Date: 20120703
  Transmission Date: 20140127
  Serious: No
  Sender: FDA-Public Use
  Company Number: PHEH2012US007019

PATIENT
  Age: 53 Year
  Sex: Male

DRUGS (4)
  1. GILENYA (FTY) CAPSULE, 0.5MG [Suspect]
     Indication: MULTIPLE SCLEROSIS
     Route: 048
     Dates: start: 20120327
  2. RITALIN [Suspect]
  3. OXYBUTYNIN (OXYBUTYNIN) [Concomitant]
  4. NEURONTIN (GABAPENTIN) [Concomitant]

REACTIONS (6)
  - Muscle strain [None]
  - Gait disturbance [None]
  - Fatigue [None]
  - Nasopharyngitis [None]
  - Asthenia [None]
  - Cough [None]
